FAERS Safety Report 5197244-0 (Version None)
Quarter: 2006Q4

REPORT INFORMATION
  Report Type: 
  Country: None (occurrence: None)
  Receive Date: 20061227
  Receipt Date: 20061213
  Transmission Date: 20070319
  Serious: Yes (Hospitalization)
  Sender: FDA-Public Use
  Company Number: ST-2006-009438

PATIENT
  Age: 71 Year
  Sex: Male

DRUGS (6)
  1. OLMETEC [Suspect]
     Indication: HYPERTENSION
     Dosage: 20 MG QD PO
     Route: 048
     Dates: start: 20060209, end: 20061205
  2. MOBIC [Suspect]
     Dosage: 10 MG QD PO
     Route: 048
     Dates: start: 20060103, end: 20060925
  3. FASTIC [Suspect]
     Dosage: 90 MG BID PO
     Route: 048
     Dates: start: 20060103, end: 20060925
  4. LIPIDIL [Suspect]
     Dosage: 20 MG BID PO
     Route: 048
     Dates: start: 20060301, end: 20060925
  5. ARTIST [Concomitant]
  6. CALBLOCK [Concomitant]

REACTIONS (1)
  - INTERSTITIAL LUNG DISEASE [None]
